FAERS Safety Report 6971352-3 (Version None)
Quarter: 2010Q3

REPORT INFORMATION
  Report Type: 
  Country: None (occurrence: None)
  Receive Date: 20100908
  Receipt Date: 20100903
  Transmission Date: 20110219
  Serious: Yes (Other)
  Sender: FDA-Public Use
  Company Number: PHHY2010BR58511

PATIENT
  Sex: Male
  Weight: 75 kg

DRUGS (2)
  1. FORADILE [Suspect]
     Indication: DYSPNOEA
     Dosage: INHALATION OF 1 CAPSULE TWICE A DAY (IN THE MORNING AND AT NIGHT)
     Dates: start: 19980101
  2. AEROLIN SPRAY [Concomitant]

REACTIONS (3)
  - CATARACT [None]
  - CATARACT OPERATION [None]
  - GLAUCOMA [None]
